FAERS Safety Report 17188849 (Version 2)
Quarter: 2020Q1

REPORT INFORMATION
  Report Type: Spontaneous
  Country: US (occurrence: US)
  Receive Date: 20191222
  Receipt Date: 20200324
  Transmission Date: 20200409
  Serious: No
  Sender: FDA-Public Use
  Company Number: US-ACORDA-ACO_161252_2019

PATIENT
  Age: 71 Year
  Sex: Female

DRUGS (2)
  1. INBRIJA [Suspect]
     Active Substance: LEVODOPA
     Indication: PARKINSON^S DISEASE
     Dosage: 84 MILLIGRAM, 5X/QD (ALSO: AS NEEDED UP TO 2 TIMES DAILY)
     Dates: start: 20190822
  2. CARBIDOPA AND LEVODOPA [Concomitant]
     Active Substance: CARBIDOPA\LEVODOPA
     Indication: PRODUCT USED FOR UNKNOWN INDICATION
     Dosage: 36.25 MG/145 MG UP TO 10 DOSES PER DAY (3 CAPSULES 3 TIMES DAILY)
     Route: 065

REACTIONS (10)
  - Arthralgia [Unknown]
  - Device ineffective [Unknown]
  - Back pain [Unknown]
  - Spinal stenosis [Unknown]
  - Device occlusion [Unknown]
  - Musculoskeletal pain [Unknown]
  - Hyperhidrosis [Unknown]
  - Dysphonia [Unknown]
  - Wrong technique in device usage process [Unknown]
  - Incorrect dose administered by device [Unknown]

NARRATIVE: CASE EVENT DATE: 201909
